FAERS Safety Report 10203764 (Version 2)
Quarter: 2014Q2

REPORT INFORMATION
  Report Type: Report from Study
  Country: JP (occurrence: JP)
  Receive Date: 20140529
  Receipt Date: 20140529
  Transmission Date: 20141212
  Serious: Yes (Other)
  Sender: FDA-Public Use
  Company Number: JP-AMGEN-JPNCT2014029301

PATIENT
  Age: 92 Year
  Sex: Female
  Weight: 39 kg

DRUGS (14)
  1. ROMIPLOSTIM - KHK [Suspect]
     Indication: IMMUNE THROMBOCYTOPENIC PURPURA
     Dosage: 1 MG/KG, QD
     Route: 058
     Dates: start: 20120414, end: 20120505
  2. REVOLADE [Concomitant]
     Indication: IMMUNE THROMBOCYTOPENIC PURPURA
     Dosage: UNK
     Route: 048
     Dates: start: 20120512
  3. PREDONINE                          /00016201/ [Concomitant]
     Indication: IMMUNE THROMBOCYTOPENIC PURPURA
     Dosage: 07 MG, UNK
     Route: 048
     Dates: start: 20120409
  4. TAKEPRON [Concomitant]
     Indication: IMMUNE THROMBOCYTOPENIC PURPURA
     Dosage: 60 MG, UNK
     Route: 048
     Dates: start: 20120412, end: 20120418
  5. AMOLIN                             /00249602/ [Concomitant]
     Indication: IMMUNE THROMBOCYTOPENIC PURPURA
     Dosage: 1500 MG, UNK
     Route: 048
     Dates: start: 20120412, end: 20120418
  6. CLARITH [Concomitant]
     Indication: IMMUNE THROMBOCYTOPENIC PURPURA
     Dosage: 400 MG, UNK
     Route: 048
     Dates: start: 20120412, end: 20120418
  7. PARIET [Concomitant]
     Indication: PROPHYLAXIS
     Dosage: UNK
     Route: 048
  8. MUCOSTA [Concomitant]
     Indication: PROPHYLAXIS
     Dosage: UNK
     Route: 065
  9. LUPRAC [Concomitant]
     Indication: PROPHYLAXIS
     Dosage: UNK
     Route: 048
  10. ALFAROL [Concomitant]
     Indication: PROPHYLAXIS
     Dosage: UNK
     Route: 048
  11. ACTONEL [Concomitant]
     Indication: PROPHYLAXIS
     Dosage: UNK
     Route: 048
  12. BAYASPIRIN [Concomitant]
     Indication: PROPHYLAXIS
     Dosage: UNK
     Route: 048
  13. BAKTAR [Concomitant]
     Indication: PROPHYLAXIS
     Dosage: UNK
     Route: 048
  14. FLUCONAZON [Concomitant]
     Indication: PROPHYLAXIS
     Dosage: UNK
     Route: 065

REACTIONS (3)
  - Deep vein thrombosis [Recovering/Resolving]
  - Neutrophil count increased [Recovered/Resolved]
  - Infection [Recovered/Resolved]
